FAERS Safety Report 7040287-2 (Version None)
Quarter: 2010Q4

REPORT INFORMATION
  Report Type: 
  Country: None (occurrence: None)
  Receive Date: 20101012
  Receipt Date: 20100929
  Transmission Date: 20110411
  Serious: Yes (Hospitalization, Other)
  Sender: FDA-Public Use
  Company Number: AU-PFIZER INC-2010123786

PATIENT
  Age: 54 Year
  Sex: Male

DRUGS (2)
  1. SILDENAFIL CITRATE [Suspect]
     Indication: ERECTILE DYSFUNCTION
     Dosage: UNK
  2. GLIBENCLAMIDE [Suspect]
     Dosage: UNK

REACTIONS (2)
  - HYPERTENSION [None]
  - HYPOGLYCAEMIA [None]
